FAERS Safety Report 24760635 (Version 1)
Quarter: 2024Q4

REPORT INFORMATION
  Report Type: Spontaneous
  Country: US (occurrence: None)
  Receive Date: 20241220
  Receipt Date: 20241220
  Transmission Date: 20250115
  Serious: No
  Sender: Public
  Company Number: None

PATIENT

DRUGS (2)
  1. SCOPOLAMINE [Suspect]
     Active Substance: SCOPOLAMINE
     Dosage: PACKAGE TYPE:  BOX
  2. SCOPOLAMINE [Suspect]
     Active Substance: SCOPOLAMINE
     Dosage: PACKAGE TYPE:  BOX

REACTIONS (3)
  - Stomatitis [None]
  - Stomatitis [None]
  - Tongue discomfort [None]
